FAERS Safety Report 19374986 (Version 2)
Quarter: 2021Q3

REPORT INFORMATION
  Report Type: Report from Study
  Country: US (occurrence: US)
  Receive Date: 20210604
  Receipt Date: 20210727
  Transmission Date: 20211014
  Serious: Yes (Life-Threatening)
  Sender: FDA-Public Use
  Company Number: US-BAYER-2021-149365

PATIENT
  Age: 75 Year
  Sex: Female

DRUGS (1)
  1. ASPIRIN 500 MG ENTERIC?COATED TABLETS [Suspect]
     Active Substance: ASPIRIN
     Indication: SUICIDE ATTEMPT
     Dosage: 100 TABLETS

REACTIONS (7)
  - Vomiting [Recovering/Resolving]
  - Anion gap abnormal [None]
  - Toxicity to various agents [Recovering/Resolving]
  - Hyperchloraemia [None]
  - Nausea [Recovering/Resolving]
  - Suicide attempt [None]
  - Overdose [None]
